FAERS Safety Report 21905363 (Version 5)
Quarter: 2024Q3

REPORT INFORMATION
  Report Type: Spontaneous
  Country: CA (occurrence: CA)
  Receive Date: 20230124
  Receipt Date: 20240822
  Transmission Date: 20241017
  Serious: Yes (Life-Threatening, Hospitalization, Other)
  Sender: NOVARTIS
  Company Number: CA-002147023-NVSC2021CA315860

PATIENT
  Age: 77 Year
  Sex: Female

DRUGS (398)
  1. AMITRIPTYLINE HYDROCHLORIDE [Interacting]
     Active Substance: AMITRIPTYLINE HYDROCHLORIDE
     Indication: Angina pectoris
     Dosage: 50 MG, QD
     Route: 065
  2. AMITRIPTYLINE HYDROCHLORIDE [Interacting]
     Active Substance: AMITRIPTYLINE HYDROCHLORIDE
     Indication: Hypertension
     Dosage: 50 MG, QD
     Route: 065
  3. AMITRIPTYLINE HYDROCHLORIDE [Interacting]
     Active Substance: AMITRIPTYLINE HYDROCHLORIDE
     Indication: Arthritis
     Dosage: 75 MG, QD
     Route: 065
  4. AMITRIPTYLINE HYDROCHLORIDE [Interacting]
     Active Substance: AMITRIPTYLINE HYDROCHLORIDE
     Indication: Constipation
     Dosage: UNK
     Route: 065
  5. AMITRIPTYLINE HYDROCHLORIDE [Interacting]
     Active Substance: AMITRIPTYLINE HYDROCHLORIDE
     Indication: Radioactive iodine therapy
     Dosage: UNK
     Route: 065
  6. AMITRIPTYLINE HYDROCHLORIDE [Interacting]
     Active Substance: AMITRIPTYLINE HYDROCHLORIDE
     Indication: Fibromyalgia
     Dosage: UNK
     Route: 065
  7. AMITRIPTYLINE HYDROCHLORIDE [Interacting]
     Active Substance: AMITRIPTYLINE HYDROCHLORIDE
     Indication: Coronary artery disease
     Dosage: UNK
     Route: 065
  8. AMITRIPTYLINE HYDROCHLORIDE [Interacting]
     Active Substance: AMITRIPTYLINE HYDROCHLORIDE
     Indication: Dementia
     Dosage: UNK
     Route: 048
  9. AMITRIPTYLINE HYDROCHLORIDE [Interacting]
     Active Substance: AMITRIPTYLINE HYDROCHLORIDE
     Indication: Duodenal ulcer
     Dosage: UNK
     Route: 065
  10. AMITRIPTYLINE HYDROCHLORIDE [Interacting]
     Active Substance: AMITRIPTYLINE HYDROCHLORIDE
     Indication: Prophylaxis
     Dosage: UNK
     Route: 065
  11. AMITRIPTYLINE HYDROCHLORIDE [Interacting]
     Active Substance: AMITRIPTYLINE HYDROCHLORIDE
     Indication: Insomnia
     Dosage: UNK
     Route: 065
  12. AMITRIPTYLINE HYDROCHLORIDE [Interacting]
     Active Substance: AMITRIPTYLINE HYDROCHLORIDE
     Indication: Thyroid disorder
     Dosage: UNK
     Route: 065
  13. AMITRIPTYLINE HYDROCHLORIDE [Interacting]
     Active Substance: AMITRIPTYLINE HYDROCHLORIDE
     Indication: Oedema
     Dosage: UNK
     Route: 065
  14. AMITRIPTYLINE HYDROCHLORIDE [Interacting]
     Active Substance: AMITRIPTYLINE HYDROCHLORIDE
     Indication: Chest pain
     Dosage: UNK
     Route: 048
  15. AMITRIPTYLINE HYDROCHLORIDE [Interacting]
     Active Substance: AMITRIPTYLINE HYDROCHLORIDE
     Indication: Pain
     Dosage: 25 MG, QD
     Route: 065
  16. AMITRIPTYLINE HYDROCHLORIDE [Interacting]
     Active Substance: AMITRIPTYLINE HYDROCHLORIDE
     Indication: Small intestine carcinoma
     Dosage: 75 MG, QD
     Route: 065
  17. AMITRIPTYLINE HYDROCHLORIDE [Interacting]
     Active Substance: AMITRIPTYLINE HYDROCHLORIDE
     Dosage: 75 MG, QD
     Route: 065
  18. AMITRIPTYLINE HYDROCHLORIDE [Interacting]
     Active Substance: AMITRIPTYLINE HYDROCHLORIDE
     Dosage: 50 MG, QD
     Route: 065
  19. AMITRIPTYLINE HYDROCHLORIDE [Interacting]
     Active Substance: AMITRIPTYLINE HYDROCHLORIDE
     Dosage: 50 MG
     Route: 065
  20. AMITRIPTYLINE HYDROCHLORIDE [Interacting]
     Active Substance: AMITRIPTYLINE HYDROCHLORIDE
     Dosage: 75 MG, QD
     Route: 065
  21. AMITRIPTYLINE HYDROCHLORIDE [Interacting]
     Active Substance: AMITRIPTYLINE HYDROCHLORIDE
     Dosage: 50 MG, QD
     Route: 065
  22. AMITRIPTYLINE HYDROCHLORIDE [Interacting]
     Active Substance: AMITRIPTYLINE HYDROCHLORIDE
     Dosage: 50 MG, QD
     Route: 065
  23. AMITRIPTYLINE HYDROCHLORIDE [Interacting]
     Active Substance: AMITRIPTYLINE HYDROCHLORIDE
     Dosage: 75 MG, QD
     Route: 065
  24. AMITRIPTYLINE HYDROCHLORIDE [Interacting]
     Active Substance: AMITRIPTYLINE HYDROCHLORIDE
     Dosage: 50 MG, QD
     Route: 065
  25. AMITRIPTYLINE HYDROCHLORIDE [Interacting]
     Active Substance: AMITRIPTYLINE HYDROCHLORIDE
     Dosage: 75 MG, QD
     Route: 065
  26. AMITRIPTYLINE HYDROCHLORIDE [Interacting]
     Active Substance: AMITRIPTYLINE HYDROCHLORIDE
     Dosage: 75 MG
     Route: 065
  27. AMITRIPTYLINE HYDROCHLORIDE [Interacting]
     Active Substance: AMITRIPTYLINE HYDROCHLORIDE
     Dosage: 50 MG, QD
     Route: 065
  28. AMITRIPTYLINE HYDROCHLORIDE [Interacting]
     Active Substance: AMITRIPTYLINE HYDROCHLORIDE
     Dosage: 75 MG, QD
     Route: 065
  29. AMITRIPTYLINE HYDROCHLORIDE [Interacting]
     Active Substance: AMITRIPTYLINE HYDROCHLORIDE
     Dosage: 75 MG, QD
     Route: 065
  30. AMITRIPTYLINE HYDROCHLORIDE [Interacting]
     Active Substance: AMITRIPTYLINE HYDROCHLORIDE
     Dosage: 75 MG, QD
     Route: 065
  31. PHENYLEPHRINE HYDROCHLORIDE [Interacting]
     Active Substance: PHENYLEPHRINE HYDROCHLORIDE
     Indication: Pain
     Dosage: UNK
     Route: 065
  32. OMEPRAZOLE [Interacting]
     Active Substance: OMEPRAZOLE
     Indication: Duodenal ulcer
     Dosage: 20 MG, QD
     Route: 048
  33. OMEPRAZOLE [Interacting]
     Active Substance: OMEPRAZOLE
     Indication: Small intestine carcinoma
     Dosage: 20 MG, QD
     Route: 048
  34. OMEPRAZOLE [Interacting]
     Active Substance: OMEPRAZOLE
     Indication: Chest pain
     Dosage: 20 MG, QD
     Route: 065
  35. OMEPRAZOLE [Interacting]
     Active Substance: OMEPRAZOLE
     Indication: Angina pectoris
     Dosage: 20 MG, Q12H
     Route: 048
  36. OMEPRAZOLE [Interacting]
     Active Substance: OMEPRAZOLE
     Indication: Hypertension
     Dosage: 20 MG, QD
     Route: 048
  37. OMEPRAZOLE [Interacting]
     Active Substance: OMEPRAZOLE
     Indication: Coronary artery disease
     Dosage: 20 MG, QD
     Route: 048
  38. OMEPRAZOLE [Interacting]
     Active Substance: OMEPRAZOLE
     Dosage: UNK
     Route: 048
  39. OMEPRAZOLE [Interacting]
     Active Substance: OMEPRAZOLE
     Dosage: UNK
     Route: 065
  40. OXCARBAZEPINE [Interacting]
     Active Substance: OXCARBAZEPINE
     Indication: Product used for unknown indication
     Dosage: UNK
     Route: 065
  41. OXCARBAZEPINE [Interacting]
     Active Substance: OXCARBAZEPINE
     Dosage: UNK
     Route: 065
  42. AMLODIPINE BESYLATE [Interacting]
     Active Substance: AMLODIPINE BESYLATE
     Indication: Constipation
     Dosage: UNK (TOTAL)
     Route: 065
  43. AMLODIPINE BESYLATE [Interacting]
     Active Substance: AMLODIPINE BESYLATE
     Indication: Coronary artery disease
     Dosage: 5 MG, QD
     Route: 065
  44. AMLODIPINE BESYLATE [Interacting]
     Active Substance: AMLODIPINE BESYLATE
     Indication: Angina pectoris
     Dosage: UNK
     Route: 065
  45. AMLODIPINE BESYLATE [Interacting]
     Active Substance: AMLODIPINE BESYLATE
     Indication: Hypertension
     Dosage: UNK
     Route: 065
  46. AMLODIPINE BESYLATE [Interacting]
     Active Substance: AMLODIPINE BESYLATE
     Indication: Chest pain
     Dosage: 5 MG, QD
     Route: 065
  47. AMLODIPINE BESYLATE [Interacting]
     Active Substance: AMLODIPINE BESYLATE
     Dosage: 5 MG
     Route: 065
  48. AMLODIPINE BESYLATE [Interacting]
     Active Substance: AMLODIPINE BESYLATE
     Dosage: 5 MG, QD
     Route: 065
  49. AMLODIPINE BESYLATE [Interacting]
     Active Substance: AMLODIPINE BESYLATE
     Dosage: 5 MG, QD
     Route: 065
  50. AMLODIPINE BESYLATE [Interacting]
     Active Substance: AMLODIPINE BESYLATE
     Dosage: UNK
     Route: 065
  51. AMLODIPINE BESYLATE [Interacting]
     Active Substance: AMLODIPINE BESYLATE
     Dosage: 5 MG, QD
     Route: 065
  52. AMLODIPINE BESYLATE [Interacting]
     Active Substance: AMLODIPINE BESYLATE
     Dosage: UNK
     Route: 065
  53. AMLODIPINE BESYLATE [Interacting]
     Active Substance: AMLODIPINE BESYLATE
     Dosage: UNK
     Route: 065
  54. AMLODIPINE BESYLATE [Interacting]
     Active Substance: AMLODIPINE BESYLATE
     Dosage: UNK
     Route: 065
  55. AMLODIPINE BESYLATE [Interacting]
     Active Substance: AMLODIPINE BESYLATE
     Dosage: UNK
     Route: 065
  56. AMLODIPINE BESYLATE [Interacting]
     Active Substance: AMLODIPINE BESYLATE
     Dosage: 5 MG, QD
     Route: 065
  57. AMLODIPINE BESYLATE [Interacting]
     Active Substance: AMLODIPINE BESYLATE
     Dosage: 5 MG
     Route: 065
  58. AMLODIPINE BESYLATE [Interacting]
     Active Substance: AMLODIPINE BESYLATE
     Dosage: UNK
     Route: 065
  59. AMLODIPINE BESYLATE [Interacting]
     Active Substance: AMLODIPINE BESYLATE
     Dosage: 5 MG, QD
     Route: 065
  60. AMLODIPINE BESYLATE [Interacting]
     Active Substance: AMLODIPINE BESYLATE
     Dosage: UNK
     Route: 065
  61. AMLODIPINE BESYLATE [Interacting]
     Active Substance: AMLODIPINE BESYLATE
     Dosage: 5 MG, QD
     Route: 065
  62. AMLODIPINE BESYLATE [Interacting]
     Active Substance: AMLODIPINE BESYLATE
     Dosage: 5 MG, QD
     Route: 065
  63. AMLODIPINE BESYLATE [Interacting]
     Active Substance: AMLODIPINE BESYLATE
     Dosage: 5 MG, QD
     Route: 065
  64. AMLODIPINE BESYLATE [Interacting]
     Active Substance: AMLODIPINE BESYLATE
     Dosage: 5 MG, QD
     Route: 065
  65. AMLODIPINE BESYLATE [Interacting]
     Active Substance: AMLODIPINE BESYLATE
     Dosage: 5 MG, QD
     Route: 065
  66. AMLODIPINE BESYLATE [Interacting]
     Active Substance: AMLODIPINE BESYLATE
     Dosage: 5 MG, QD
     Route: 065
  67. AMLODIPINE BESYLATE [Interacting]
     Active Substance: AMLODIPINE BESYLATE
     Dosage: UNK
     Route: 065
  68. AMLODIPINE BESYLATE [Interacting]
     Active Substance: AMLODIPINE BESYLATE
     Dosage: UNK
     Route: 065
  69. AMLODIPINE BESYLATE [Interacting]
     Active Substance: AMLODIPINE BESYLATE
     Dosage: UNK
     Route: 065
  70. AMLODIPINE BESYLATE [Interacting]
     Active Substance: AMLODIPINE BESYLATE
     Dosage: UNK
     Route: 065
  71. AMLODIPINE BESYLATE [Interacting]
     Active Substance: AMLODIPINE BESYLATE
     Dosage: UNK
     Route: 065
  72. AMLODIPINE BESYLATE [Interacting]
     Active Substance: AMLODIPINE BESYLATE
     Dosage: 5 MG, QD
     Route: 065
  73. AMLODIPINE BESYLATE [Interacting]
     Active Substance: AMLODIPINE BESYLATE
     Dosage: 5 MG, QD
     Route: 065
  74. AMLODIPINE BESYLATE [Interacting]
     Active Substance: AMLODIPINE BESYLATE
     Dosage: 5 MG, QD
     Route: 065
  75. AMLODIPINE BESYLATE [Interacting]
     Active Substance: AMLODIPINE BESYLATE
     Dosage: 5 MG, QD
     Route: 065
  76. AMLODIPINE BESYLATE [Interacting]
     Active Substance: AMLODIPINE BESYLATE
     Dosage: 5 MG, QD
     Route: 065
  77. AMLODIPINE BESYLATE [Interacting]
     Active Substance: AMLODIPINE BESYLATE
     Dosage: 5 MG, QD
     Route: 065
  78. AMLODIPINE BESYLATE [Interacting]
     Active Substance: AMLODIPINE BESYLATE
     Dosage: 5 MG, QD
     Route: 065
  79. AMLODIPINE BESYLATE [Interacting]
     Active Substance: AMLODIPINE BESYLATE
     Dosage: 5 MG, QD
     Route: 065
  80. AMLODIPINE BESYLATE [Interacting]
     Active Substance: AMLODIPINE BESYLATE
     Dosage: 5 MG, QD
     Route: 065
  81. AMLODIPINE BESYLATE [Interacting]
     Active Substance: AMLODIPINE BESYLATE
     Dosage: 5 MG, QD
     Route: 065
  82. AMLODIPINE BESYLATE [Interacting]
     Active Substance: AMLODIPINE BESYLATE
     Dosage: 5 MG, QD
     Route: 065
  83. AMLODIPINE BESYLATE [Interacting]
     Active Substance: AMLODIPINE BESYLATE
     Dosage: 5 MG, QD
     Route: 065
  84. AMLODIPINE BESYLATE [Interacting]
     Active Substance: AMLODIPINE BESYLATE
     Dosage: UNK
     Route: 065
  85. AMLODIPINE BESYLATE [Interacting]
     Active Substance: AMLODIPINE BESYLATE
     Dosage: UNK
     Route: 065
  86. AMLODIPINE BESYLATE [Interacting]
     Active Substance: AMLODIPINE BESYLATE
     Dosage: 5 MG, QD
     Route: 065
  87. FUROSEMIDE [Interacting]
     Active Substance: FUROSEMIDE
     Indication: Oedema
     Dosage: 40 MG, QD
     Route: 061
  88. FUROSEMIDE [Interacting]
     Active Substance: FUROSEMIDE
     Indication: Coronary artery disease
     Dosage: 4 MG, QD
     Route: 065
  89. FUROSEMIDE [Interacting]
     Active Substance: FUROSEMIDE
     Indication: Chest pain
     Dosage: 40 MG, QD
     Route: 065
  90. FUROSEMIDE [Interacting]
     Active Substance: FUROSEMIDE
     Indication: Angina pectoris
     Dosage: 40 MG, QD
     Route: 065
  91. FUROSEMIDE [Interacting]
     Active Substance: FUROSEMIDE
     Dosage: 4 MG, QD
     Route: 065
  92. FUROSEMIDE [Interacting]
     Active Substance: FUROSEMIDE
     Dosage: 40 MG, QD
     Route: 065
  93. FUROSEMIDE [Interacting]
     Active Substance: FUROSEMIDE
     Dosage: 4 MG, QD
     Route: 065
  94. FUROSEMIDE [Interacting]
     Active Substance: FUROSEMIDE
     Dosage: 40 MG, QD
     Route: 065
  95. FUROSEMIDE [Interacting]
     Active Substance: FUROSEMIDE
     Dosage: 10 MG, QD
     Route: 065
  96. FUROSEMIDE [Interacting]
     Active Substance: FUROSEMIDE
     Dosage: UNK
     Route: 065
  97. FUROSEMIDE [Interacting]
     Active Substance: FUROSEMIDE
     Dosage: UNK
     Route: 065
  98. FUROSEMIDE [Interacting]
     Active Substance: FUROSEMIDE
     Dosage: 20 MG, QD
     Route: 065
  99. FUROSEMIDE [Interacting]
     Active Substance: FUROSEMIDE
     Dosage: UNK
     Route: 065
  100. FUROSEMIDE [Interacting]
     Active Substance: FUROSEMIDE
     Dosage: 40 MG, QD
     Route: 065
  101. FUROSEMIDE [Interacting]
     Active Substance: FUROSEMIDE
     Dosage: 40 MG, QD
     Route: 065
  102. FUROSEMIDE [Interacting]
     Active Substance: FUROSEMIDE
     Dosage: 40 MG, QD
     Route: 065
  103. FUROSEMIDE [Interacting]
     Active Substance: FUROSEMIDE
     Dosage: 40 MG, QD
     Route: 065
  104. FUROSEMIDE [Interacting]
     Active Substance: FUROSEMIDE
     Dosage: 40 MG, QD
     Route: 065
  105. FUROSEMIDE [Interacting]
     Active Substance: FUROSEMIDE
     Dosage: 40 MG, QD
     Route: 065
  106. FUROSEMIDE [Interacting]
     Active Substance: FUROSEMIDE
     Dosage: 40 MG, QD
     Route: 065
  107. FUROSEMIDE [Interacting]
     Active Substance: FUROSEMIDE
     Dosage: 40 MG, QD
     Route: 065
  108. FUROSEMIDE [Interacting]
     Active Substance: FUROSEMIDE
     Dosage: 40 MG, QD
     Route: 065
  109. FUROSEMIDE [Interacting]
     Active Substance: FUROSEMIDE
     Dosage: 40 MG, QD
     Route: 065
  110. FUROSEMIDE [Interacting]
     Active Substance: FUROSEMIDE
     Dosage: 40 MG, QD
     Route: 065
  111. FUROSEMIDE [Interacting]
     Active Substance: FUROSEMIDE
     Dosage: UNK
     Route: 065
  112. FUROSEMIDE [Interacting]
     Active Substance: FUROSEMIDE
     Dosage: UNK
     Route: 065
  113. FUROSEMIDE [Interacting]
     Active Substance: FUROSEMIDE
     Dosage: UNK
     Route: 065
  114. FUROSEMIDE [Interacting]
     Active Substance: FUROSEMIDE
     Dosage: UNK
     Route: 065
  115. FUROSEMIDE [Interacting]
     Active Substance: FUROSEMIDE
     Dosage: 40 MG, QD
     Route: 065
  116. FUROSEMIDE [Interacting]
     Active Substance: FUROSEMIDE
     Dosage: 40 MG, QD
     Route: 065
  117. DIAZEPAM [Interacting]
     Active Substance: DIAZEPAM
     Indication: Coronary artery disease
     Dosage: UNK
     Route: 065
  118. DIAZEPAM [Interacting]
     Active Substance: DIAZEPAM
     Indication: Angina pectoris
     Dosage: UNK
     Route: 065
  119. DIAZEPAM [Interacting]
     Active Substance: DIAZEPAM
     Indication: Insomnia
     Dosage: UNK
     Route: 065
  120. DIAZEPAM [Interacting]
     Active Substance: DIAZEPAM
     Dosage: 75 MG, QD
     Route: 065
  121. GALANTAMINE HYDROBROMIDE [Interacting]
     Active Substance: GALANTAMINE HYDROBROMIDE
     Indication: Dementia
     Dosage: 16 MG, QD
     Route: 065
  122. GALANTAMINE HYDROBROMIDE [Interacting]
     Active Substance: GALANTAMINE HYDROBROMIDE
     Dosage: UNK
     Route: 065
  123. GALANTAMINE HYDROBROMIDE [Interacting]
     Active Substance: GALANTAMINE HYDROBROMIDE
     Dosage: UNK
     Route: 065
  124. GALANTAMINE HYDROBROMIDE [Interacting]
     Active Substance: GALANTAMINE HYDROBROMIDE
     Dosage: 16 MG
     Route: 065
  125. GALANTAMINE HYDROBROMIDE [Interacting]
     Active Substance: GALANTAMINE HYDROBROMIDE
     Dosage: 16 MG, QD
     Route: 065
  126. ALBUTEROL SULFATE [Interacting]
     Active Substance: ALBUTEROL SULFATE
     Indication: Chest pain
     Dosage: 100 MG, QD
     Route: 065
  127. ALBUTEROL SULFATE [Interacting]
     Active Substance: ALBUTEROL SULFATE
     Indication: Angina pectoris
     Dosage: 400 MG, Q6H
     Route: 065
  128. ALBUTEROL SULFATE [Interacting]
     Active Substance: ALBUTEROL SULFATE
     Indication: Constipation
     Dosage: 100 UG, QD
     Route: 065
  129. ALBUTEROL SULFATE [Interacting]
     Active Substance: ALBUTEROL SULFATE
     Indication: Hypertension
     Dosage: 200 MG, Q6H
     Route: 065
  130. ALBUTEROL SULFATE [Interacting]
     Active Substance: ALBUTEROL SULFATE
     Indication: Coronary artery disease
     Dosage: 200 UG, Q6H
     Route: 065
  131. ALBUTEROL SULFATE [Interacting]
     Active Substance: ALBUTEROL SULFATE
     Dosage: 100 MG, QD
     Route: 065
  132. ALBUTEROL SULFATE [Interacting]
     Active Substance: ALBUTEROL SULFATE
     Dosage: 400 MG, Q6H
     Route: 065
  133. ALBUTEROL SULFATE [Interacting]
     Active Substance: ALBUTEROL SULFATE
     Dosage: UNK
     Route: 065
  134. ALBUTEROL SULFATE [Interacting]
     Active Substance: ALBUTEROL SULFATE
     Dosage: 200 UG, Q6H
     Route: 065
  135. ALBUTEROL SULFATE [Interacting]
     Active Substance: ALBUTEROL SULFATE
     Dosage: 200 MG, Q6H
     Route: 065
  136. ALBUTEROL SULFATE [Interacting]
     Active Substance: ALBUTEROL SULFATE
     Dosage: 100 UG, QD
     Route: 065
  137. ALBUTEROL SULFATE [Interacting]
     Active Substance: ALBUTEROL SULFATE
     Dosage: UNK
     Route: 065
  138. ALBUTEROL SULFATE [Interacting]
     Active Substance: ALBUTEROL SULFATE
     Dosage: 200 UG, QID
     Route: 065
  139. ALBUTEROL SULFATE [Interacting]
     Active Substance: ALBUTEROL SULFATE
     Dosage: 400 MG, QID
     Route: 065
  140. ALBUTEROL SULFATE [Interacting]
     Active Substance: ALBUTEROL SULFATE
     Dosage: 100 MG, QD
     Route: 065
  141. ALBUTEROL SULFATE [Interacting]
     Active Substance: ALBUTEROL SULFATE
     Dosage: 400 MG, QID
     Route: 065
  142. ALBUTEROL SULFATE [Interacting]
     Active Substance: ALBUTEROL SULFATE
     Dosage: 200 MG, QID
     Route: 065
  143. ROSUVASTATIN CALCIUM [Interacting]
     Active Substance: ROSUVASTATIN CALCIUM
     Indication: Cerebrovascular accident
     Dosage: 20 MG, Q12H
     Route: 048
  144. ROSUVASTATIN CALCIUM [Interacting]
     Active Substance: ROSUVASTATIN CALCIUM
     Indication: Chronic obstructive pulmonary disease
     Dosage: 20 MG, QD
     Route: 065
  145. ROSUVASTATIN CALCIUM [Interacting]
     Active Substance: ROSUVASTATIN CALCIUM
     Indication: Coronary artery disease
     Dosage: 200 MG, Q12H
     Route: 065
  146. ROSUVASTATIN CALCIUM [Interacting]
     Active Substance: ROSUVASTATIN CALCIUM
     Indication: Insomnia
     Dosage: 20 MG, QOD
     Route: 065
  147. ROSUVASTATIN CALCIUM [Interacting]
     Active Substance: ROSUVASTATIN CALCIUM
     Indication: Hypertension
     Dosage: 40 MG, QD
     Route: 048
  148. ROSUVASTATIN CALCIUM [Interacting]
     Active Substance: ROSUVASTATIN CALCIUM
     Indication: Chest pain
     Dosage: 200 MG, BID
     Route: 065
  149. ROSUVASTATIN CALCIUM [Interacting]
     Active Substance: ROSUVASTATIN CALCIUM
     Indication: Angina pectoris
     Dosage: UNK, BID
     Route: 065
  150. ROSUVASTATIN CALCIUM [Interacting]
     Active Substance: ROSUVASTATIN CALCIUM
     Dosage: UNK
     Route: 065
  151. ROSUVASTATIN CALCIUM [Interacting]
     Active Substance: ROSUVASTATIN CALCIUM
     Dosage: UNK
     Route: 065
  152. ROSUVASTATIN CALCIUM [Interacting]
     Active Substance: ROSUVASTATIN CALCIUM
     Dosage: 200 MG, BID
     Route: 048
  153. ROSUVASTATIN CALCIUM [Interacting]
     Active Substance: ROSUVASTATIN CALCIUM
     Dosage: UNK
     Route: 048
  154. ROSUVASTATIN CALCIUM [Interacting]
     Active Substance: ROSUVASTATIN CALCIUM
     Dosage: 20 MG, Q12H
     Route: 048
  155. ROSUVASTATIN CALCIUM [Interacting]
     Active Substance: ROSUVASTATIN CALCIUM
     Dosage: 20 MG, Q12H
     Route: 048
  156. ROSUVASTATIN CALCIUM [Interacting]
     Active Substance: ROSUVASTATIN CALCIUM
     Dosage: 20 MG, Q12H
     Route: 048
  157. ROSUVASTATIN CALCIUM [Interacting]
     Active Substance: ROSUVASTATIN CALCIUM
     Dosage: UNK
     Route: 048
  158. ROSUVASTATIN CALCIUM [Interacting]
     Active Substance: ROSUVASTATIN CALCIUM
     Dosage: UNK
     Route: 048
  159. ROSUVASTATIN CALCIUM [Interacting]
     Active Substance: ROSUVASTATIN CALCIUM
     Dosage: UNK
     Route: 048
  160. ROSUVASTATIN CALCIUM [Interacting]
     Active Substance: ROSUVASTATIN CALCIUM
     Dosage: UNK
     Route: 048
  161. ROSUVASTATIN CALCIUM [Interacting]
     Active Substance: ROSUVASTATIN CALCIUM
     Dosage: UNK
     Route: 048
  162. ROSUVASTATIN CALCIUM [Interacting]
     Active Substance: ROSUVASTATIN CALCIUM
     Dosage: UNK
     Route: 048
  163. ROSUVASTATIN CALCIUM [Interacting]
     Active Substance: ROSUVASTATIN CALCIUM
     Dosage: UNK
     Route: 048
  164. ROSUVASTATIN CALCIUM [Interacting]
     Active Substance: ROSUVASTATIN CALCIUM
     Dosage: UNK
     Route: 048
  165. ROSUVASTATIN CALCIUM [Interacting]
     Active Substance: ROSUVASTATIN CALCIUM
     Dosage: UNK
     Route: 048
  166. ROSUVASTATIN CALCIUM [Interacting]
     Active Substance: ROSUVASTATIN CALCIUM
     Dosage: UNK
     Route: 048
  167. ROSUVASTATIN CALCIUM [Interacting]
     Active Substance: ROSUVASTATIN CALCIUM
     Dosage: UNK
     Route: 048
  168. ROSUVASTATIN CALCIUM [Interacting]
     Active Substance: ROSUVASTATIN CALCIUM
     Dosage: 200 MG, Q8H
     Route: 065
  169. ROSUVASTATIN CALCIUM [Interacting]
     Active Substance: ROSUVASTATIN CALCIUM
     Dosage: 40 MG, QD
     Route: 048
  170. ROSUVASTATIN CALCIUM [Interacting]
     Active Substance: ROSUVASTATIN CALCIUM
     Dosage: 200 MG, Q8H
     Route: 065
  171. ROSUVASTATIN CALCIUM [Interacting]
     Active Substance: ROSUVASTATIN CALCIUM
     Dosage: 20 MG, Q12H
     Route: 048
  172. ROSUVASTATIN CALCIUM [Interacting]
     Active Substance: ROSUVASTATIN CALCIUM
     Dosage: 20 MG, Q12H
     Route: 048
  173. ROSUVASTATIN CALCIUM [Interacting]
     Active Substance: ROSUVASTATIN CALCIUM
     Dosage: 20 MG, QD
     Route: 048
  174. ROSUVASTATIN CALCIUM [Interacting]
     Active Substance: ROSUVASTATIN CALCIUM
     Dosage: UNK
     Route: 048
  175. ROSUVASTATIN CALCIUM [Interacting]
     Active Substance: ROSUVASTATIN CALCIUM
     Dosage: 20 MG, Q12H
     Route: 048
  176. ROSUVASTATIN CALCIUM [Interacting]
     Active Substance: ROSUVASTATIN CALCIUM
     Dosage: 200 MG, Q8H
     Route: 065
  177. ROSUVASTATIN CALCIUM [Interacting]
     Active Substance: ROSUVASTATIN CALCIUM
     Dosage: 40 MG, QD
     Route: 048
  178. ROSUVASTATIN CALCIUM [Interacting]
     Active Substance: ROSUVASTATIN CALCIUM
     Dosage: 20 MG, Q12H
     Route: 048
  179. ROSUVASTATIN CALCIUM [Interacting]
     Active Substance: ROSUVASTATIN CALCIUM
     Dosage: 20 MG, QD
     Route: 048
  180. ROSUVASTATIN CALCIUM [Interacting]
     Active Substance: ROSUVASTATIN CALCIUM
     Dosage: 20 MG, QD
     Route: 048
  181. ROSUVASTATIN CALCIUM [Interacting]
     Active Substance: ROSUVASTATIN CALCIUM
     Dosage: 20 MG, QD
     Route: 048
  182. ROSUVASTATIN CALCIUM [Interacting]
     Active Substance: ROSUVASTATIN CALCIUM
     Dosage: 200 MG, Q8H
     Route: 065
  183. ROSUVASTATIN CALCIUM [Interacting]
     Active Substance: ROSUVASTATIN CALCIUM
     Dosage: 200 MG, Q12H
     Route: 065
  184. ROSUVASTATIN CALCIUM [Interacting]
     Active Substance: ROSUVASTATIN CALCIUM
     Dosage: 200 MG, Q12H
     Route: 065
  185. ROSUVASTATIN CALCIUM [Interacting]
     Active Substance: ROSUVASTATIN CALCIUM
     Dosage: 200 MG, Q12H
     Route: 065
  186. ROSUVASTATIN CALCIUM [Interacting]
     Active Substance: ROSUVASTATIN CALCIUM
     Dosage: 20 MG, Q12H
     Route: 048
  187. ROSUVASTATIN CALCIUM [Interacting]
     Active Substance: ROSUVASTATIN CALCIUM
     Dosage: 40 MG, QD
     Route: 048
  188. ROSUVASTATIN CALCIUM [Interacting]
     Active Substance: ROSUVASTATIN CALCIUM
     Dosage: 200 MG, Q12H
     Route: 065
  189. ROSUVASTATIN CALCIUM [Interacting]
     Active Substance: ROSUVASTATIN CALCIUM
     Dosage: 200 MG, Q12H
     Route: 065
  190. LEVOFLOXACIN [Interacting]
     Active Substance: LEVOFLOXACIN
     Indication: Urinary tract infection
     Dosage: 250 MG, QD
     Route: 065
  191. LEVOFLOXACIN [Interacting]
     Active Substance: LEVOFLOXACIN
     Dosage: 250 MG, Q12H
     Route: 065
  192. LEVOFLOXACIN [Interacting]
     Active Substance: LEVOFLOXACIN
     Dosage: UNK
     Route: 065
  193. LEVOFLOXACIN [Interacting]
     Active Substance: LEVOFLOXACIN
     Dosage: 200 MG, QD
     Route: 065
  194. LEVOFLOXACIN [Interacting]
     Active Substance: LEVOFLOXACIN
     Dosage: 200 MG, QD
     Route: 065
  195. LEVOFLOXACIN [Interacting]
     Active Substance: LEVOFLOXACIN
     Dosage: 250 MG
     Route: 065
  196. LEVOFLOXACIN [Interacting]
     Active Substance: LEVOFLOXACIN
     Dosage: 15 MG
     Route: 065
  197. LEVOFLOXACIN [Interacting]
     Active Substance: LEVOFLOXACIN
     Dosage: UNK
     Route: 065
  198. LEVOFLOXACIN [Interacting]
     Active Substance: LEVOFLOXACIN
     Dosage: 250 MG, Q12H
     Route: 065
  199. LEVOFLOXACIN [Interacting]
     Active Substance: LEVOFLOXACIN
     Dosage: 250 MG, QD
     Route: 065
  200. ERGOCALCIFEROL [Interacting]
     Active Substance: ERGOCALCIFEROL
     Indication: Product used for unknown indication
     Dosage: UNK
     Route: 065
  201. AMLODIPINE [Interacting]
     Active Substance: AMLODIPINE BESYLATE
     Indication: Hypertension
     Dosage: 50 MG, QD
     Route: 065
  202. AMLODIPINE [Interacting]
     Active Substance: AMLODIPINE BESYLATE
     Indication: Coronary artery disease
     Dosage: UNK
     Route: 065
  203. AMLODIPINE [Interacting]
     Active Substance: AMLODIPINE BESYLATE
     Indication: Chest pain
     Dosage: UNK
     Route: 065
  204. AMLODIPINE [Interacting]
     Active Substance: AMLODIPINE BESYLATE
     Indication: Angina pectoris
     Dosage: 5 MG, QD
     Route: 065
  205. AMLODIPINE [Interacting]
     Active Substance: AMLODIPINE BESYLATE
     Indication: Constipation
  206. ATROPINE [Interacting]
     Active Substance: ATROPINE
     Indication: Coronary artery disease
     Dosage: UNK
     Route: 065
  207. ATROPINE [Interacting]
     Active Substance: ATROPINE
     Indication: Chest pain
     Dosage: 6 MG, QD
     Route: 061
  208. ATROPINE [Interacting]
     Active Substance: ATROPINE
     Indication: Angina pectoris
     Dosage: UNK
     Route: 065
  209. CARBAMAZEPINE [Interacting]
     Active Substance: CARBAMAZEPINE
     Indication: Seizure
     Dosage: 2 DOSAGE FORM, QD
     Route: 065
  210. CARBAMAZEPINE [Interacting]
     Active Substance: CARBAMAZEPINE
     Indication: Seizure prophylaxis
     Dosage: 200 MG, Q12H
     Route: 065
  211. CARBAMAZEPINE [Interacting]
     Active Substance: CARBAMAZEPINE
     Indication: Fibromyalgia
     Dosage: 200 MG, Q48H
     Route: 065
  212. CARBAMAZEPINE [Interacting]
     Active Substance: CARBAMAZEPINE
     Indication: Pain
     Dosage: 100 MG, Q12H
     Route: 065
  213. CARBAMAZEPINE [Interacting]
     Active Substance: CARBAMAZEPINE
     Dosage: 2 DOSAGE FORM, QD
     Route: 065
  214. CARBAMAZEPINE [Interacting]
     Active Substance: CARBAMAZEPINE
     Dosage: 400 MG, Q12H
     Route: 065
  215. CARBAMAZEPINE [Interacting]
     Active Substance: CARBAMAZEPINE
     Dosage: 100 MG, BID
     Route: 065
  216. CARBAMAZEPINE [Interacting]
     Active Substance: CARBAMAZEPINE
     Dosage: 200 MG, BID
     Route: 065
  217. CARBAMAZEPINE [Interacting]
     Active Substance: CARBAMAZEPINE
     Dosage: 2 DOSAGE FORM, Q12H
     Route: 065
  218. CARBAMAZEPINE [Interacting]
     Active Substance: CARBAMAZEPINE
     Dosage: 400 MG, Q12H
     Route: 065
  219. CARBAMAZEPINE [Interacting]
     Active Substance: CARBAMAZEPINE
     Dosage: 200 MG, Q12H
     Route: 065
  220. CARBAMAZEPINE [Interacting]
     Active Substance: CARBAMAZEPINE
     Dosage: 100 MG
     Route: 065
  221. CARBAMAZEPINE [Interacting]
     Active Substance: CARBAMAZEPINE
     Dosage: 2 DOSAGE FORM, QD
     Route: 065
  222. CARBAMAZEPINE [Interacting]
     Active Substance: CARBAMAZEPINE
     Dosage: 1 DOSAGE FORM, QD
     Route: 065
  223. CARBAMAZEPINE [Interacting]
     Active Substance: CARBAMAZEPINE
     Dosage: 200 MG
     Route: 065
  224. CARBAMAZEPINE [Interacting]
     Active Substance: CARBAMAZEPINE
     Dosage: 1 DOSAGE FORM, Q12H
     Route: 065
  225. CARBAMAZEPINE [Interacting]
     Active Substance: CARBAMAZEPINE
     Dosage: 200 MG, Q12H
     Route: 065
  226. CARBAMAZEPINE [Interacting]
     Active Substance: CARBAMAZEPINE
     Dosage: 100 MG, Q12H
     Route: 065
  227. CARBAMAZEPINE [Interacting]
     Active Substance: CARBAMAZEPINE
     Dosage: UNK
     Route: 065
  228. CARBAMAZEPINE [Interacting]
     Active Substance: CARBAMAZEPINE
     Dosage: UNK
     Route: 065
  229. CARBAMAZEPINE [Interacting]
     Active Substance: CARBAMAZEPINE
     Dosage: 500 MG, QD
     Route: 065
  230. CARBAMAZEPINE [Interacting]
     Active Substance: CARBAMAZEPINE
     Dosage: 200 MG, BID
     Route: 065
  231. CARBAMAZEPINE [Interacting]
     Active Substance: CARBAMAZEPINE
     Dosage: 200 MG, BID
     Route: 065
  232. CARBAMAZEPINE [Interacting]
     Active Substance: CARBAMAZEPINE
     Dosage: 1 DOSAGE FORM
     Route: 065
  233. CARBAMAZEPINE [Interacting]
     Active Substance: CARBAMAZEPINE
     Dosage: 200 MG, BID
     Route: 065
  234. CARBAMAZEPINE [Interacting]
     Active Substance: CARBAMAZEPINE
     Dosage: 400 MG, BID
     Route: 065
  235. CARBAMAZEPINE [Interacting]
     Active Substance: CARBAMAZEPINE
     Dosage: 100 MG, QD
     Route: 065
  236. CARBAMAZEPINE [Interacting]
     Active Substance: CARBAMAZEPINE
     Dosage: 200 MG
     Route: 065
  237. CARBAMAZEPINE [Interacting]
     Active Substance: CARBAMAZEPINE
     Dosage: UNK
     Route: 065
  238. CARBAMAZEPINE [Interacting]
     Active Substance: CARBAMAZEPINE
     Dosage: 10 MG
     Route: 065
  239. CARBAMAZEPINE [Interacting]
     Active Substance: CARBAMAZEPINE
     Dosage: 200 MG, QD
     Route: 065
  240. CARBAMAZEPINE [Interacting]
     Active Substance: CARBAMAZEPINE
     Dosage: 200 MG, QD
     Route: 065
  241. CARBAMAZEPINE [Interacting]
     Active Substance: CARBAMAZEPINE
     Dosage: 100 MG, Q12H
     Route: 065
  242. CARBAMAZEPINE [Interacting]
     Active Substance: CARBAMAZEPINE
     Dosage: 200 MG, QD
     Route: 065
  243. CARBAMAZEPINE [Interacting]
     Active Substance: CARBAMAZEPINE
     Dosage: 200 MG, Q12H
     Route: 065
  244. CARBAMAZEPINE [Interacting]
     Active Substance: CARBAMAZEPINE
     Dosage: 200 MG, Q12H
     Route: 065
  245. CARBAMAZEPINE [Interacting]
     Active Substance: CARBAMAZEPINE
     Dosage: 200 MG, Q12H
     Route: 065
  246. CARBAMAZEPINE [Interacting]
     Active Substance: CARBAMAZEPINE
     Dosage: 200 MG, Q12H
     Route: 065
  247. CARBAMAZEPINE [Interacting]
     Active Substance: CARBAMAZEPINE
     Dosage: 200 MG, Q12H
     Route: 065
  248. CARBAMAZEPINE [Interacting]
     Active Substance: CARBAMAZEPINE
     Dosage: 2 DOSAGE FORM, QD
     Route: 065
  249. CARBAMAZEPINE [Interacting]
     Active Substance: CARBAMAZEPINE
     Dosage: 2 DOSAGE FORM, QD
     Route: 065
  250. CARBAMAZEPINE [Interacting]
     Active Substance: CARBAMAZEPINE
     Dosage: 2 DOSAGE FORM, QD
     Route: 065
  251. CARBAMAZEPINE [Interacting]
     Active Substance: CARBAMAZEPINE
     Dosage: 2 DOSAGE FORM, QD
     Route: 065
  252. CARBAMAZEPINE [Interacting]
     Active Substance: CARBAMAZEPINE
     Dosage: 2 DOSAGE FORM, QD
     Route: 065
  253. CARBAMAZEPINE [Interacting]
     Active Substance: CARBAMAZEPINE
     Dosage: 200 MG, Q12H
     Route: 065
  254. PHENOBARBITAL [Interacting]
     Active Substance: PHENOBARBITAL
     Indication: Coronary artery disease
     Dosage: 6 MG, QD
     Route: 061
  255. PHENOBARBITAL [Interacting]
     Active Substance: PHENOBARBITAL
     Indication: Chest pain
     Dosage: UNK
     Route: 065
  256. PHENOBARBITAL [Interacting]
     Active Substance: PHENOBARBITAL
     Indication: Angina pectoris
     Dosage: UNK
     Route: 065
  257. DILTIAZEM HYDROCHLORIDE [Interacting]
     Active Substance: DILTIAZEM HYDROCHLORIDE
     Indication: Coronary artery disease
     Dosage: 15 MG, QD
     Route: 065
  258. DILTIAZEM HYDROCHLORIDE [Interacting]
     Active Substance: DILTIAZEM HYDROCHLORIDE
     Indication: Hypertension
     Dosage: 36 MG, QD
     Route: 065
  259. DILTIAZEM HYDROCHLORIDE [Interacting]
     Active Substance: DILTIAZEM HYDROCHLORIDE
     Indication: Chest pain
     Dosage: 360 MG, QD
     Route: 065
  260. DILTIAZEM HYDROCHLORIDE [Interacting]
     Active Substance: DILTIAZEM HYDROCHLORIDE
     Indication: Angina pectoris
     Dosage: UNK
     Route: 065
  261. DILTIAZEM HYDROCHLORIDE [Interacting]
     Active Substance: DILTIAZEM HYDROCHLORIDE
     Dosage: UNK
     Route: 065
  262. DILTIAZEM HYDROCHLORIDE [Interacting]
     Active Substance: DILTIAZEM HYDROCHLORIDE
     Dosage: 360 MG, QD
     Route: 065
  263. DILTIAZEM HYDROCHLORIDE [Interacting]
     Active Substance: DILTIAZEM HYDROCHLORIDE
     Dosage: 369 MG, QD
     Route: 065
  264. DILTIAZEM HYDROCHLORIDE [Interacting]
     Active Substance: DILTIAZEM HYDROCHLORIDE
     Dosage: UNK
     Route: 065
  265. DILTIAZEM HYDROCHLORIDE [Interacting]
     Active Substance: DILTIAZEM HYDROCHLORIDE
     Dosage: 360 MG, QD
     Route: 065
  266. DILTIAZEM HYDROCHLORIDE [Interacting]
     Active Substance: DILTIAZEM HYDROCHLORIDE
     Dosage: 360 MG, QD
     Route: 065
  267. DILTIAZEM HYDROCHLORIDE [Interacting]
     Active Substance: DILTIAZEM HYDROCHLORIDE
     Dosage: UNK
     Route: 065
  268. DILTIAZEM HYDROCHLORIDE [Interacting]
     Active Substance: DILTIAZEM HYDROCHLORIDE
     Dosage: 360 MG, QD
     Route: 065
  269. DILTIAZEM HYDROCHLORIDE [Interacting]
     Active Substance: DILTIAZEM HYDROCHLORIDE
     Dosage: UNK
     Route: 065
  270. DILTIAZEM HYDROCHLORIDE [Interacting]
     Active Substance: DILTIAZEM HYDROCHLORIDE
     Dosage: 360 MG, QD
     Route: 065
  271. DILTIAZEM HYDROCHLORIDE [Interacting]
     Active Substance: DILTIAZEM HYDROCHLORIDE
     Dosage: UNK
     Route: 065
  272. DILTIAZEM HYDROCHLORIDE [Interacting]
     Active Substance: DILTIAZEM HYDROCHLORIDE
     Dosage: UNK
     Route: 065
  273. DILTIAZEM HYDROCHLORIDE [Interacting]
     Active Substance: DILTIAZEM HYDROCHLORIDE
     Dosage: 15 MG, QD
     Route: 065
  274. DILTIAZEM HYDROCHLORIDE [Interacting]
     Active Substance: DILTIAZEM HYDROCHLORIDE
     Dosage: 36 MG, QD
     Route: 065
  275. DILTIAZEM HYDROCHLORIDE [Interacting]
     Active Substance: DILTIAZEM HYDROCHLORIDE
     Dosage: UNK
     Route: 065
  276. DILTIAZEM HYDROCHLORIDE [Interacting]
     Active Substance: DILTIAZEM HYDROCHLORIDE
     Dosage: 360 MG, QD
     Route: 065
  277. DILTIAZEM HYDROCHLORIDE [Interacting]
     Active Substance: DILTIAZEM HYDROCHLORIDE
     Dosage: UNK
     Route: 065
  278. DILTIAZEM HYDROCHLORIDE [Interacting]
     Active Substance: DILTIAZEM HYDROCHLORIDE
     Dosage: 360 MG, QD (1 EVERY 1 DAYS)
     Route: 065
  279. DILTIAZEM HYDROCHLORIDE [Interacting]
     Active Substance: DILTIAZEM HYDROCHLORIDE
     Dosage: 360 MG, QD (1 EVERY 1 DAYS)
     Route: 065
  280. DILTIAZEM HYDROCHLORIDE [Interacting]
     Active Substance: DILTIAZEM HYDROCHLORIDE
     Dosage: 360 MG, QD (1 EVERY 1 DAYS)
     Route: 065
  281. DILTIAZEM HYDROCHLORIDE [Interacting]
     Active Substance: DILTIAZEM HYDROCHLORIDE
     Dosage: UNK
     Route: 065
  282. DILTIAZEM HYDROCHLORIDE [Interacting]
     Active Substance: DILTIAZEM HYDROCHLORIDE
     Dosage: UNK
     Route: 065
  283. DILTIAZEM HYDROCHLORIDE [Interacting]
     Active Substance: DILTIAZEM HYDROCHLORIDE
     Dosage: UNK
     Route: 065
  284. DILTIAZEM HYDROCHLORIDE [Interacting]
     Active Substance: DILTIAZEM HYDROCHLORIDE
     Indication: Chest pain
     Dosage: 36 MG, QD
     Route: 042
  285. DILTIAZEM HYDROCHLORIDE [Interacting]
     Active Substance: DILTIAZEM HYDROCHLORIDE
     Indication: Angina pectoris
     Dosage: 15 MG, QD
     Route: 065
  286. DILTIAZEM HYDROCHLORIDE [Interacting]
     Active Substance: DILTIAZEM HYDROCHLORIDE
     Indication: Hypertension
     Dosage: 360 MG, QD
     Route: 042
  287. DILTIAZEM HYDROCHLORIDE [Interacting]
     Active Substance: DILTIAZEM HYDROCHLORIDE
     Indication: Coronary artery disease
     Dosage: UNK
     Route: 042
  288. DILTIAZEM HYDROCHLORIDE [Interacting]
     Active Substance: DILTIAZEM HYDROCHLORIDE
     Dosage: 40 MG, Q12H
     Route: 065
  289. LEVOTHYROXINE SODIUM [Interacting]
     Active Substance: LEVOTHYROXINE SODIUM
     Indication: Thyroid disorder
     Dosage: 0.09 MG, QD
     Route: 065
  290. LEVOTHYROXINE SODIUM [Interacting]
     Active Substance: LEVOTHYROXINE SODIUM
     Indication: Radioactive iodine therapy
     Dosage: 0.8 MG, QD
     Route: 065
  291. LEVOTHYROXINE SODIUM [Interacting]
     Active Substance: LEVOTHYROXINE SODIUM
     Indication: Constipation
     Dosage: 0.88 MG, QD
     Route: 065
  292. LEVOTHYROXINE SODIUM [Interacting]
     Active Substance: LEVOTHYROXINE SODIUM
     Dosage: UNK
     Route: 065
  293. LEVOTHYROXINE SODIUM [Interacting]
     Active Substance: LEVOTHYROXINE SODIUM
     Dosage: 0.9 MG, QD
     Route: 065
  294. LEVOTHYROXINE SODIUM [Interacting]
     Active Substance: LEVOTHYROXINE SODIUM
     Dosage: 0.88 MG
     Route: 065
  295. LEVOTHYROXINE SODIUM [Interacting]
     Active Substance: LEVOTHYROXINE SODIUM
     Dosage: UNK
     Route: 065
  296. LEVOTHYROXINE SODIUM [Interacting]
     Active Substance: LEVOTHYROXINE SODIUM
     Dosage: 0.8 MG, QD
     Route: 065
  297. LEVOTHYROXINE SODIUM [Interacting]
     Active Substance: LEVOTHYROXINE SODIUM
     Dosage: 0.088 MG, QD
     Route: 065
  298. LEVOTHYROXINE SODIUM [Interacting]
     Active Substance: LEVOTHYROXINE SODIUM
     Dosage: 622 MG, BID
     Route: 065
  299. LEVOTHYROXINE SODIUM [Interacting]
     Active Substance: LEVOTHYROXINE SODIUM
     Dosage: UNK
     Route: 065
  300. LEVOTHYROXINE SODIUM [Interacting]
     Active Substance: LEVOTHYROXINE SODIUM
     Dosage: UNK
     Route: 048
  301. LEVOTHYROXINE SODIUM [Interacting]
     Active Substance: LEVOTHYROXINE SODIUM
     Dosage: 0.09 MG
     Route: 065
  302. LEVOTHYROXINE SODIUM [Interacting]
     Active Substance: LEVOTHYROXINE SODIUM
     Dosage: UNK
     Route: 048
  303. LEVOTHYROXINE SODIUM [Interacting]
     Active Substance: LEVOTHYROXINE SODIUM
     Dosage: 88 MG, QD
     Route: 065
  304. LEVOTHYROXINE SODIUM [Interacting]
     Active Substance: LEVOTHYROXINE SODIUM
     Dosage: 0.088 MG, QD
     Route: 065
  305. LEVOTHYROXINE SODIUM [Interacting]
     Active Substance: LEVOTHYROXINE SODIUM
     Dosage: 88 MG, QD
     Route: 065
  306. LEVOTHYROXINE SODIUM [Interacting]
     Active Substance: LEVOTHYROXINE SODIUM
     Dosage: 250 MG, BID
     Route: 065
  307. LEVOTHYROXINE SODIUM [Interacting]
     Active Substance: LEVOTHYROXINE SODIUM
     Dosage: 622 MG, BID
     Route: 065
  308. LEVOTHYROXINE SODIUM [Interacting]
     Active Substance: LEVOTHYROXINE SODIUM
     Dosage: 250 MG
     Route: 065
  309. LEVOTHYROXINE SODIUM [Interacting]
     Active Substance: LEVOTHYROXINE SODIUM
     Dosage: 250 MG, QD
     Route: 065
  310. LEVOTHYROXINE SODIUM [Interacting]
     Active Substance: LEVOTHYROXINE SODIUM
     Dosage: 0.9 MG, QD
     Route: 065
  311. LEVOTHYROXINE SODIUM [Interacting]
     Active Substance: LEVOTHYROXINE SODIUM
     Dosage: 0.9 MG, QD
     Route: 065
  312. GLUCOSAMINE [Interacting]
     Active Substance: GLUCOSAMINE
     Indication: Pain
     Dosage: 500 MG (ONCE EVERY 5 DAYS)
     Route: 065
  313. GLUCOSAMINE [Interacting]
     Active Substance: GLUCOSAMINE
     Indication: Arthritis
     Dosage: 500 MG, Q12H
     Route: 065
  314. GLUCOSAMINE [Interacting]
     Active Substance: GLUCOSAMINE
     Dosage: 500 MG, QH
     Route: 065
  315. GLUCOSAMINE [Interacting]
     Active Substance: GLUCOSAMINE
     Dosage: UNK
     Route: 065
  316. GLUCOSAMINE [Interacting]
     Active Substance: GLUCOSAMINE
     Dosage: 500 MG, QD (CAPSULE)
     Route: 065
  317. GLUCOSAMINE [Interacting]
     Active Substance: GLUCOSAMINE
     Dosage: 100 MG, QD
     Route: 065
  318. GLUCOSAMINE [Interacting]
     Active Substance: GLUCOSAMINE
     Dosage: 2500 MG, QD
     Route: 065
  319. GLUCOSAMINE [Interacting]
     Active Substance: GLUCOSAMINE
     Dosage: 500 MG
     Route: 065
  320. GLUCOSAMINE [Interacting]
     Active Substance: GLUCOSAMINE
     Dosage: 500 MG
     Route: 065
  321. GLUCOSAMINE [Interacting]
     Active Substance: GLUCOSAMINE
     Dosage: 250 MG
     Route: 065
  322. GLUCOSAMINE [Interacting]
     Active Substance: GLUCOSAMINE
     Dosage: UNK
     Route: 065
  323. GLUCOSAMINE [Interacting]
     Active Substance: GLUCOSAMINE
     Dosage: UNK
     Route: 065
  324. GLUCOSAMINE [Interacting]
     Active Substance: GLUCOSAMINE
     Dosage: 500 MG, BID
     Route: 065
  325. GLUCOSAMINE [Interacting]
     Active Substance: GLUCOSAMINE
     Dosage: 500 MG, BID
     Route: 065
  326. GLUCOSAMINE [Interacting]
     Active Substance: GLUCOSAMINE
     Dosage: 500 MG, BID
     Route: 065
  327. GLUCOSAMINE [Interacting]
     Active Substance: GLUCOSAMINE
     Dosage: 1000 MG, QD
     Route: 065
  328. GLUCOSAMINE [Interacting]
     Active Substance: GLUCOSAMINE
     Dosage: 500 MG
     Route: 065
  329. GLUCOSAMINE [Interacting]
     Active Substance: GLUCOSAMINE
     Dosage: 500 MG
     Route: 065
  330. GLUCOSAMINE [Interacting]
     Active Substance: GLUCOSAMINE
     Dosage: 500 MG, QH
     Route: 065
  331. GLUCOSAMINE [Interacting]
     Active Substance: GLUCOSAMINE
     Dosage: 500 MG, QH
     Route: 065
  332. GLUCOSAMINE [Interacting]
     Active Substance: GLUCOSAMINE
     Dosage: 1000 MG, QD
     Route: 065
  333. GLUCOSAMINE [Interacting]
     Active Substance: GLUCOSAMINE
     Dosage: 1000 MG, QD
     Route: 065
  334. GLUCOSAMINE [Interacting]
     Active Substance: GLUCOSAMINE
     Dosage: UNK
     Route: 065
  335. GLUCOSAMINE [Interacting]
     Active Substance: GLUCOSAMINE
     Dosage: UNK
     Route: 065
  336. GLUCOSAMINE [Interacting]
     Active Substance: GLUCOSAMINE
     Dosage: 500 MG, Q12H
     Route: 065
  337. GLUCOSAMINE [Interacting]
     Active Substance: GLUCOSAMINE
     Dosage: 500 MG, Q12H
     Route: 065
  338. PAPAVERINE [Interacting]
     Active Substance: PAPAVERINE
     Indication: Coronary artery disease
     Dosage: UNK
     Route: 065
  339. PAPAVERINE [Interacting]
     Active Substance: PAPAVERINE
     Indication: Angina pectoris
     Dosage: 6 MG, QD
     Route: 061
  340. PAPAVERINE [Interacting]
     Active Substance: PAPAVERINE
     Indication: Chest pain
     Dosage: UNK
     Route: 065
  341. OXAZEPAM [Interacting]
     Active Substance: OXAZEPAM
     Indication: Insomnia
     Dosage: 15 MG, QD
     Route: 048
  342. OXAZEPAM [Interacting]
     Active Substance: OXAZEPAM
     Indication: Hypertension
     Dosage: 40 MG, QD
     Route: 065
  343. OXAZEPAM [Interacting]
     Active Substance: OXAZEPAM
     Indication: Coronary artery disease
     Dosage: 20 MG, QD
     Route: 048
  344. OXAZEPAM [Interacting]
     Active Substance: OXAZEPAM
     Indication: Angina pectoris
     Dosage: UNK
     Route: 065
  345. OXAZEPAM [Interacting]
     Active Substance: OXAZEPAM
     Indication: Cerebrovascular accident
     Dosage: 15 MG, QD
     Route: 065
  346. OXAZEPAM [Interacting]
     Active Substance: OXAZEPAM
     Dosage: 40 MG, QD
     Route: 048
  347. OXAZEPAM [Interacting]
     Active Substance: OXAZEPAM
     Dosage: 15 MG, QD
     Route: 065
  348. OXAZEPAM [Interacting]
     Active Substance: OXAZEPAM
     Dosage: 15 MG, QD
     Route: 065
  349. OXAZEPAM [Interacting]
     Active Substance: OXAZEPAM
     Dosage: UNK
     Route: 065
  350. OXAZEPAM [Interacting]
     Active Substance: OXAZEPAM
     Dosage: 40 MG, QD
     Route: 048
  351. OXAZEPAM [Interacting]
     Active Substance: OXAZEPAM
     Dosage: 40 MG, QD
     Route: 048
  352. OXAZEPAM [Interacting]
     Active Substance: OXAZEPAM
     Dosage: UNK
     Route: 065
  353. OXAZEPAM [Interacting]
     Active Substance: OXAZEPAM
     Dosage: 20 MG, QD
     Route: 048
  354. OXAZEPAM [Interacting]
     Active Substance: OXAZEPAM
     Dosage: 20 MG, QD
     Route: 048
  355. OXAZEPAM [Interacting]
     Active Substance: OXAZEPAM
     Dosage: UNK
     Route: 065
  356. OXAZEPAM [Interacting]
     Active Substance: OXAZEPAM
     Dosage: UNK
     Route: 065
  357. OXAZEPAM [Interacting]
     Active Substance: OXAZEPAM
     Dosage: UNK
     Route: 048
  358. OXAZEPAM [Interacting]
     Active Substance: OXAZEPAM
     Dosage: UNK
     Route: 048
  359. OXAZEPAM [Interacting]
     Active Substance: OXAZEPAM
     Dosage: 15 MG, QD
     Route: 065
  360. OXAZEPAM [Interacting]
     Active Substance: OXAZEPAM
     Dosage: 15 MG, QD
     Route: 065
  361. OXAZEPAM [Interacting]
     Active Substance: OXAZEPAM
     Dosage: 15 MG, QD
     Route: 065
  362. MORPHINE SULFATE [Interacting]
     Active Substance: MORPHINE SULFATE
     Indication: Pain
     Dosage: 10 MG, QD
     Route: 030
  363. MORPHINE SULFATE [Interacting]
     Active Substance: MORPHINE SULFATE
     Indication: Fibromyalgia
     Dosage: 1 DOSAGE FORM, QD
     Route: 065
  364. MORPHINE SULFATE [Interacting]
     Active Substance: MORPHINE SULFATE
     Indication: Chest pain
     Dosage: 2 DOSAGE FORM, QD
     Route: 065
  365. MORPHINE SULFATE [Interacting]
     Active Substance: MORPHINE SULFATE
     Dosage: 2 DOSAGE FORM, QD
     Route: 065
  366. MORPHINE SULFATE [Interacting]
     Active Substance: MORPHINE SULFATE
     Dosage: 1 DOSAGE FORM, QD
     Route: 065
  367. MORPHINE SULFATE [Interacting]
     Active Substance: MORPHINE SULFATE
     Dosage: UNK
     Route: 030
  368. MORPHINE SULFATE [Interacting]
     Active Substance: MORPHINE SULFATE
     Dosage: 2 DOSAGE FORM, QD
     Route: 065
  369. MORPHINE SULFATE [Interacting]
     Active Substance: MORPHINE SULFATE
     Dosage: UNK
     Route: 065
  370. MORPHINE SULFATE [Interacting]
     Active Substance: MORPHINE SULFATE
     Dosage: UNK
     Route: 065
  371. MORPHINE SULFATE [Interacting]
     Active Substance: MORPHINE SULFATE
     Dosage: 10 MG, QD
     Route: 030
  372. MORPHINE SULFATE [Interacting]
     Active Substance: MORPHINE SULFATE
     Dosage: 10 MG, QD
     Route: 030
  373. MORPHINE SULFATE [Interacting]
     Active Substance: MORPHINE SULFATE
     Dosage: 10 MG, QD
     Route: 065
  374. MORPHINE SULFATE [Interacting]
     Active Substance: MORPHINE SULFATE
     Dosage: 100 MG, QD
     Route: 065
  375. MORPHINE SULFATE [Interacting]
     Active Substance: MORPHINE SULFATE
     Dosage: UNK
     Route: 065
  376. MORPHINE SULFATE [Interacting]
     Active Substance: MORPHINE SULFATE
     Dosage: 20 MG, QD
     Route: 030
  377. MORPHINE SULFATE [Interacting]
     Active Substance: MORPHINE SULFATE
     Dosage: 100 MG, QD
     Route: 065
  378. MORPHINE SULFATE [Interacting]
     Active Substance: MORPHINE SULFATE
     Dosage: 10 MG, QD
     Route: 030
  379. MORPHINE SULFATE [Interacting]
     Active Substance: MORPHINE SULFATE
     Dosage: 10 MG, QD
     Route: 030
  380. DIPYRIDAMOLE [Interacting]
     Active Substance: DIPYRIDAMOLE
     Indication: Cerebrovascular accident
     Dosage: 2 DOSAGE FORM, QD
     Route: 065
  381. DIPYRIDAMOLE [Interacting]
     Active Substance: DIPYRIDAMOLE
     Dosage: 0.5 DF, QD
     Route: 065
  382. DIPYRIDAMOLE [Interacting]
     Active Substance: DIPYRIDAMOLE
     Dosage: 2 DF, QOD
     Route: 065
  383. DIPYRIDAMOLE [Interacting]
     Active Substance: DIPYRIDAMOLE
     Dosage: 1 DOSAGE FORM, QD
     Route: 065
  384. DIPYRIDAMOLE [Interacting]
     Active Substance: DIPYRIDAMOLE
     Dosage: 1 DF, Q12H
     Route: 065
  385. DIPYRIDAMOLE [Interacting]
     Active Substance: DIPYRIDAMOLE
     Dosage: 1 DOSAGE FORM
     Route: 065
  386. DIPYRIDAMOLE [Interacting]
     Active Substance: DIPYRIDAMOLE
     Dosage: 2 DOSAGE FORM, BID
     Route: 065
  387. DIPYRIDAMOLE [Interacting]
     Active Substance: DIPYRIDAMOLE
     Dosage: 1 DOSAGE FORM, BID
     Route: 065
  388. DIPYRIDAMOLE [Interacting]
     Active Substance: DIPYRIDAMOLE
     Dosage: UNK, QD
     Route: 065
  389. DIPYRIDAMOLE [Interacting]
     Active Substance: DIPYRIDAMOLE
     Dosage: UNK
     Route: 065
  390. DIPYRIDAMOLE [Interacting]
     Active Substance: DIPYRIDAMOLE
     Dosage: UNK
     Route: 048
  391. DIPYRIDAMOLE [Interacting]
     Active Substance: DIPYRIDAMOLE
     Dosage: 0.5 DOSAGE FORM, QD
     Route: 065
  392. DIPYRIDAMOLE [Interacting]
     Active Substance: DIPYRIDAMOLE
     Dosage: 2 DOSAGE FORM, QD
     Route: 065
  393. DIPYRIDAMOLE [Interacting]
     Active Substance: DIPYRIDAMOLE
     Dosage: 25 MG
     Route: 065
  394. DIPYRIDAMOLE [Interacting]
     Active Substance: DIPYRIDAMOLE
     Dosage: 200 MG, BID
     Route: 065
  395. DIPYRIDAMOLE [Interacting]
     Active Substance: DIPYRIDAMOLE
     Dosage: 0.5 DOSAGE FORM
     Route: 065
  396. DIPYRIDAMOLE [Interacting]
     Active Substance: DIPYRIDAMOLE
     Dosage: 1 DOSAGE FORM, BID
     Route: 065
  397. DIPYRIDAMOLE [Interacting]
     Active Substance: DIPYRIDAMOLE
     Dosage: 2 DOSAGE FORM, QD
     Route: 065
  398. DIPYRIDAMOLE [Interacting]
     Active Substance: DIPYRIDAMOLE
     Dosage: 2 DOSAGE FORM, QD
     Route: 065

REACTIONS (7)
  - Blood calcium decreased [Recovered/Resolved]
  - Pain [Recovered/Resolved]
  - Mobility decreased [Recovered/Resolved]
  - Fall [Recovered/Resolved]
  - Orthostatic hypotension [Recovered/Resolved]
  - Hypotension [Recovered/Resolved]
  - Dyspnoea [Recovered/Resolved]
